FAERS Safety Report 19503931 (Version 3)
Quarter: 2021Q3

REPORT INFORMATION
  Report Type: Report from Study
  Country: ES (occurrence: ES)
  Receive Date: 20210707
  Receipt Date: 20210823
  Transmission Date: 20211014
  Serious: Yes (Other)
  Sender: FDA-Public Use
  Company Number: ES-JNJFOC-20210665679

PATIENT
  Age: 57 Year
  Sex: Male

DRUGS (3)
  1. DULOXETINE. [Concomitant]
     Active Substance: DULOXETINE
  2. SPRAVATO [Suspect]
     Active Substance: ESKETAMINE
  3. SPRAVATO [Suspect]
     Active Substance: ESKETAMINE
     Indication: DEPRESSION

REACTIONS (1)
  - Renal failure [Recovering/Resolving]
